FAERS Safety Report 13457626 (Version 2)
Quarter: 2017Q2

REPORT INFORMATION
  Report Type: Other
  Country: CN (occurrence: CN)
  Receive Date: 20170419
  Receipt Date: 20170522
  Transmission Date: 20170830
  Serious: Yes (Other)
  Sender: FDA-Public Use
  Company Number: CN-EMD SERONO-8153710

PATIENT
  Age: 50 Year
  Sex: Female

DRUGS (10)
  1. HUMAN ALBUMIN [Concomitant]
     Active Substance: ALBUMIN HUMAN
     Indication: PRODUCT USED FOR UNKNOWN INDICATION
     Route: 041
     Dates: start: 20160303
  2. METOPROLOL. [Concomitant]
     Active Substance: METOPROLOL
     Indication: PRODUCT USED FOR UNKNOWN INDICATION
     Route: 048
     Dates: start: 201603
  3. LEVOFLOXACIN HYDROCHLORIDE [Concomitant]
     Active Substance: LEVOFLOXACIN HYDROCHLORIDE
     Indication: STENOTROPHOMONAS INFECTION
     Route: 041
     Dates: start: 20160324
  4. FUROSEMIDE. [Concomitant]
     Active Substance: FUROSEMIDE
     Indication: PRODUCT USED FOR UNKNOWN INDICATION
     Route: 041
     Dates: start: 201603
  5. CASPOFUNGIN ACETATE. [Concomitant]
     Active Substance: CASPOFUNGIN ACETATE
     Indication: PERITONITIS
     Dates: start: 201603
  6. RECOMBINANT HUMAN GROWTH HORMONE (RHGH) [Suspect]
     Active Substance: SOMATROPIN
     Indication: PROMOTION OF WOUND HEALING
     Dosage: 5 UNITS
     Route: 058
     Dates: start: 20160325, end: 20160406
  7. MEROPENEM. [Concomitant]
     Active Substance: MEROPENEM
     Indication: PERITONITIS
     Route: 041
     Dates: start: 201603
  8. CEFOXITIN [Concomitant]
     Active Substance: CEFOXITIN SODIUM
     Indication: PRODUCT USED FOR UNKNOWN INDICATION
     Route: 041
     Dates: start: 20160303
  9. VANCOMYCIN HYDROCHLORIDE. [Concomitant]
     Active Substance: VANCOMYCIN HYDROCHLORIDE
     Indication: PERITONITIS
     Route: 041
     Dates: start: 201603
  10. PIPERACILLIN AND TAZOBACTAM [Concomitant]
     Active Substance: PIPERACILLIN SODIUM\TAZOBACTAM SODIUM
     Indication: STENOTROPHOMONAS INFECTION
     Route: 041
     Dates: start: 20160324

REACTIONS (2)
  - Hypercalcaemia [Recovered/Resolved]
  - Off label use [Recovered/Resolved]

NARRATIVE: CASE EVENT DATE: 20160325
